FAERS Safety Report 5158430-9 (Version None)
Quarter: 2006Q4

REPORT INFORMATION
  Report Type: 
  Country: None (occurrence: None)
  Receive Date: 20061128
  Receipt Date: 20061115
  Transmission Date: 20070319
  Serious: Yes (Other)
  Sender: FDA-Public Use
  Company Number: PHFR2006GB03409

PATIENT

DRUGS (2)
  1. LIORESAL [Suspect]
     Route: 065
  2. GABAPENTIN [Concomitant]
     Route: 065

REACTIONS (1)
  - COLITIS MICROSCOPIC [None]
